FAERS Safety Report 11595182 (Version 7)
Quarter: 2016Q2

REPORT INFORMATION
  Report Type: Report from Study
  Country: US (occurrence: US)
  Receive Date: 20151006
  Receipt Date: 20160523
  Transmission Date: 20160815
  Serious: Yes (Hospitalization, Other)
  Sender: FDA-Public Use
  Company Number: US-AMGEN-USASL2015102805

PATIENT
  Age: 50 Year
  Sex: Female

DRUGS (5)
  1. METHOTREXATE [Suspect]
     Active Substance: METHOTREXATE
     Indication: SJOGREN^S SYNDROME
     Dosage: UNK
     Route: 065
  2. ENBREL [Suspect]
     Active Substance: ETANERCEPT
     Indication: RHEUMATOID ARTHRITIS
     Dosage: 50 MG, QWK, TWO 25 MG, EVERY TUESDAY
     Route: 065
     Dates: start: 20150623
  3. BOTOX [Suspect]
     Active Substance: ONABOTULINUMTOXINA
     Indication: STIFF PERSON SYNDROME
     Dosage: UNK
     Route: 065
  4. ELIQUIS [Suspect]
     Active Substance: APIXABAN
     Indication: PULMONARY EMBOLISM
     Dosage: UNK
     Route: 065
  5. ENBREL [Suspect]
     Active Substance: ETANERCEPT
     Dosage: 50 MG, QWK, TWO 25 MG, EVERY TUESDAY
     Route: 065
     Dates: start: 20150623

REACTIONS (26)
  - Oedema peripheral [Unknown]
  - Pain in extremity [Unknown]
  - Joint swelling [Unknown]
  - Cataract [Unknown]
  - Rubber sensitivity [Unknown]
  - Feeling hot [Unknown]
  - Oesophageal spasm [Unknown]
  - Adverse drug reaction [Unknown]
  - Thrombosis [Unknown]
  - Drug ineffective [Unknown]
  - Speech disorder [Unknown]
  - Oesophagogastroduodenoscopy [Unknown]
  - Peripheral swelling [Unknown]
  - Heart rate decreased [Unknown]
  - Pulmonary embolism [Unknown]
  - Pain [Unknown]
  - Limb discomfort [Unknown]
  - Arthropathy [Unknown]
  - Influenza like illness [Unknown]
  - Stiff person syndrome [Unknown]
  - Fall [Unknown]
  - Erythema [Unknown]
  - Rehabilitation therapy [Unknown]
  - Fine motor skill dysfunction [Unknown]
  - Hospitalisation [Unknown]
  - Liver disorder [Unknown]

NARRATIVE: CASE EVENT DATE: 2015
